FAERS Safety Report 4974324-3 (Version None)
Quarter: 2006Q2

REPORT INFORMATION
  Report Type: 
  Country: None (occurrence: None)
  Receive Date: 20060417
  Receipt Date: 20060309
  Transmission Date: 20061013
  Serious: Yes (Hospitalization, Other)
  Sender: FDA-Public Use
  Company Number: US-MERCK-0603USA01711

PATIENT
  Age: 54 Year
  Sex: Male
  Weight: 80 kg

DRUGS (10)
  1. VIOXX [Suspect]
     Indication: ARTHRITIS
     Route: 048
     Dates: start: 20010202, end: 20030101
  2. INDERAL LA [Concomitant]
     Indication: HYPERTENSION
     Route: 065
  3. TERAZOSIN HYDROCHLORIDE [Concomitant]
     Route: 065
  4. PREDNISONE [Concomitant]
     Route: 065
  5. PREVACID [Concomitant]
     Route: 065
  6. AMITRIPTYLINE HYDROCHLORIDE [Concomitant]
     Route: 065
  7. PLAQUENIL [Concomitant]
     Indication: SYSTEMIC LUPUS ERYTHEMATOSUS
     Route: 065
  8. CIMETIDINE [Concomitant]
     Route: 065
  9. IMITREX [Concomitant]
     Indication: MIGRAINE
     Route: 065
  10. ROXILOX [Concomitant]
     Route: 065

REACTIONS (23)
  - ABDOMINAL PAIN UPPER [None]
  - ANAEMIA [None]
  - ANGINA PECTORIS [None]
  - BLEEDING TIME ABNORMAL [None]
  - CAROTID ARTERY STENOSIS [None]
  - CEREBROVASCULAR ACCIDENT [None]
  - CHOLECYSTECTOMY [None]
  - DIZZINESS [None]
  - DYSPEPSIA [None]
  - ECZEMA [None]
  - EYE DISCHARGE [None]
  - GALLBLADDER DISORDER [None]
  - GASTRITIS [None]
  - HYPERPARATHYROIDISM [None]
  - LOBAR PNEUMONIA [None]
  - MIGRAINE [None]
  - NICOTINE DEPENDENCE [None]
  - OCULAR HYPERAEMIA [None]
  - OTITIS MEDIA [None]
  - PARATHYROIDECTOMY [None]
  - TRANSIENT ISCHAEMIC ATTACK [None]
  - VASCULITIS [None]
  - VASCULITIS CEREBRAL [None]
